FAERS Safety Report 12648206 (Version 1)
Quarter: 2016Q3

REPORT INFORMATION
  Report Type: Spontaneous
  Country: US (occurrence: None)
  Receive Date: 20160811
  Receipt Date: 20160811
  Transmission Date: 20161109
  Serious: Yes (Hospitalization)
  Sender: FDA-Public Use
  Company Number: None

PATIENT
  Age: 64 Year
  Sex: Male
  Weight: 78.9 kg

DRUGS (3)
  1. DEXAMETHASONE. [Suspect]
     Active Substance: DEXAMETHASONE
     Dates: end: 20160716
  2. VELCADE [Suspect]
     Active Substance: BORTEZOMIB
     Dates: end: 20160714
  3. LENALIDOMIDE (CC-5013) [Suspect]
     Active Substance: LENALIDOMIDE
     Dates: end: 20160718

REACTIONS (9)
  - Atrial fibrillation [None]
  - Hypotension [None]
  - Cardiomyopathy [None]
  - Neutropenia [None]
  - Renal failure [None]
  - Cardiomegaly [None]
  - Cardiac failure congestive [None]
  - Cardiac amyloidosis [None]
  - Pleural effusion [None]

NARRATIVE: CASE EVENT DATE: 20160720
